FAERS Safety Report 18910587 (Version 6)
Quarter: 2021Q3

REPORT INFORMATION
  Report Type: Spontaneous
  Country: DE (occurrence: DE)
  Receive Date: 20210218
  Receipt Date: 20210812
  Transmission Date: 20211014
  Serious: Yes (Death, Hospitalization)
  Sender: FDA-Public Use
  Company Number: NVSC2020DE307486

PATIENT
  Age: 73 Year
  Sex: Male
  Weight: 85 kg

DRUGS (11)
  1. PEMETREXED. [Suspect]
     Active Substance: PEMETREXED
     Dosage: 500 MG
     Route: 042
     Dates: start: 20201005
  2. CARBOPLATIN. [Suspect]
     Active Substance: CARBOPLATIN
     Dosage: 220 MG
     Route: 042
     Dates: start: 20201005
  3. DEXAMETHASONE. [Concomitant]
     Active Substance: DEXAMETHASONE
     Indication: PRODUCT USED FOR UNKNOWN INDICATION
     Dosage: 12 MG (ADMINISTERED PER CYCLE, THERAPY DATE FOR ALL: FROM 05 OCT UNTIL 26 OCT 2020)
     Route: 042
     Dates: end: 20201026
  4. PEMBROLIZUMAB. [Suspect]
     Active Substance: PEMBROLIZUMAB
     Dosage: 200 MG
     Route: 042
  5. GRANISETRON [Concomitant]
     Active Substance: GRANISETRON
     Indication: PRODUCT USED FOR UNKNOWN INDICATION
     Dosage: 1 MG (ADMINISTERED PER CYCLE, THERAPY DATE FOR ALL FROM 05 OCT UNTIL 26 OCT 2020)
     Route: 042
     Dates: end: 20201026
  6. PEMETREXED. [Suspect]
     Active Substance: PEMETREXED
     Dosage: 500 MG
     Route: 042
  7. CARBOPLATIN. [Suspect]
     Active Substance: CARBOPLATIN
     Dosage: 220 MG
     Route: 042
  8. PEMBROLIZUMAB. [Suspect]
     Active Substance: PEMBROLIZUMAB
     Indication: NON-SMALL CELL LUNG CANCER
     Dosage: 200 MG
     Route: 042
     Dates: start: 20201005, end: 20201103
  9. PEGFILGRASTIM [Concomitant]
     Active Substance: PEGFILGRASTIM
     Indication: PRODUCT USED FOR UNKNOWN INDICATION
     Dosage: 6 MG (ADMINISTERED PER CYCLE, THERAPY DATE FOR ALL: FROM 05OCT UNTIL 26 OCT 2020)
     Route: 058
     Dates: end: 20201026
  10. PEMETREXED. [Suspect]
     Active Substance: PEMETREXED
     Indication: NON-SMALL CELL LUNG CANCER
     Dosage: 350 MG
     Route: 042
  11. CARBOPLATIN. [Suspect]
     Active Substance: CARBOPLATIN
     Indication: NON-SMALL CELL LUNG CANCER
     Dosage: 170 MG
     Route: 065

REACTIONS (3)
  - Pancytopenia [Fatal]
  - Staphylococcal sepsis [Fatal]
  - Sepsis [Fatal]

NARRATIVE: CASE EVENT DATE: 20201103
